FAERS Safety Report 20097519 (Version 3)
Quarter: 2022Q1

REPORT INFORMATION
  Report Type: Spontaneous
  Country: JP (occurrence: JP)
  Receive Date: 20211122
  Receipt Date: 20220125
  Transmission Date: 20220423
  Serious: Yes (Death, Hospitalization)
  Sender: FDA-Public Use
  Company Number: JP-ELI_LILLY_AND_COMPANY-JP202111007822AA

PATIENT
  Age: 61 Year
  Sex: Male
  Weight: 62 kg

DRUGS (4)
  1. CYRAMZA [Suspect]
     Active Substance: RAMUCIRUMAB
     Indication: Lung neoplasm malignant
     Dosage: 520 MG, CYCLICAL
     Route: 041
     Dates: start: 20210826, end: 20211008
  2. DOCETAXEL [Suspect]
     Active Substance: DOCETAXEL
     Indication: Lung neoplasm malignant
     Dosage: 80 MG, CYCLICAL
     Route: 041
     Dates: start: 20210826, end: 20211008
  3. AMIODARONE HYDROCHLORIDE [Suspect]
     Active Substance: AMIODARONE HYDROCHLORIDE
     Indication: Ventricular tachycardia
     Dosage: 200 MG
     Route: 048
     Dates: start: 20210825, end: 20211026
  4. CARVEDILOL [Concomitant]
     Active Substance: CARVEDILOL
     Indication: Ventricular tachycardia
     Dosage: 5 MG
     Route: 048
     Dates: start: 20210825, end: 20211104

REACTIONS (1)
  - Pneumonitis [Fatal]

NARRATIVE: CASE EVENT DATE: 20211017
